FAERS Safety Report 5226500-2 (Version None)
Quarter: 2007Q1

REPORT INFORMATION
  Report Type: 
  Country: None (occurrence: None)
  Receive Date: 20070201
  Receipt Date: 20070123
  Transmission Date: 20070707
  Serious: Yes (Other)
  Sender: FDA-Public Use
  Company Number: JP-PFIZER INC-2006147056

PATIENT
  Sex: Male
  Weight: 63 kg

DRUGS (13)
  1. DETRUSITOL SR [Suspect]
     Indication: HYPERTONIC BLADDER
     Route: 048
     Dates: start: 20061124, end: 20061124
  2. HARNAL [Concomitant]
     Route: 048
  3. ADALAT [Concomitant]
     Route: 048
  4. MICARDIS [Concomitant]
     Route: 048
  5. PAXIL [Concomitant]
     Route: 048
  6. THYRADIN S [Concomitant]
     Route: 048
  7. UNIPHYL [Concomitant]
     Route: 048
  8. LAFUTIDINE [Concomitant]
     Route: 048
  9. ALL OTHER THERAPEUTIC PRODUCTS [Concomitant]
     Route: 048
  10. SELBEX [Concomitant]
     Route: 048
  11. FERROMIA [Concomitant]
     Route: 048
  12. TALION [Concomitant]
     Route: 048
  13. PULMICORT [Concomitant]
     Route: 048

REACTIONS (6)
  - CEREBROVASCULAR STENOSIS [None]
  - DIPLOPIA [None]
  - HEADACHE [None]
  - HYPERTENSION [None]
  - HYPOAESTHESIA [None]
  - NAUSEA [None]
